FAERS Safety Report 9912995 (Version 1)
Quarter: 2014Q1

REPORT INFORMATION
  Report Type: Spontaneous
  Country: US (occurrence: None)
  Receive Date: 20140218
  Receipt Date: 20140218
  Transmission Date: 20141002
  Serious: Yes (Hospitalization)
  Sender: FDA-Public Use
  Company Number: None

PATIENT
  Age: 72 Year
  Sex: Male
  Weight: 88.2 kg

DRUGS (2)
  1. ATORVASTATIN [Suspect]
     Indication: HYPERLIPIDAEMIA
     Route: 048
     Dates: start: 20131231, end: 20140109
  2. DICLOFENAC [Suspect]
     Indication: ARTHRITIS
     Route: 048
     Dates: start: 20130814, end: 20140122

REACTIONS (2)
  - Angioedema [None]
  - Urticaria [None]
